FAERS Safety Report 12783125 (Version 1)
Quarter: 2016Q3

REPORT INFORMATION
  Report Type: Spontaneous
  Country: US (occurrence: US)
  Receive Date: 20160927
  Receipt Date: 20160927
  Transmission Date: 20161109
  Serious: Yes (Other)
  Sender: FDA-Public Use
  Company Number: US-BEH-2009020037

PATIENT
  Sex: Female
  Weight: 58.97 kg

DRUGS (1)
  1. VIVAGLOBIN [Suspect]
     Active Substance: HUMAN IMMUNOGLOBULIN G
     Indication: PRIMARY IMMUNODEFICIENCY SYNDROME
     Dosage: 43 ML OVER 3 SITES WEEKLY FOR ABOUT 4.5 - 5 HOURS
     Route: 058
     Dates: start: 20090324

REACTIONS (10)
  - Abdominal distension [Recovered/Resolved]
  - Headache [Recovered/Resolved]
  - Musculoskeletal stiffness [Recovered/Resolved]
  - Erythema [Recovered/Resolved]
  - Infusion site swelling [Recovered/Resolved]
  - Musculoskeletal stiffness [Recovered/Resolved]
  - Pruritus [Recovered/Resolved]
  - Swelling [Recovered/Resolved]
  - Meningitis aseptic [Recovered/Resolved]
  - Weight increased [Recovered/Resolved]

NARRATIVE: CASE EVENT DATE: 200903
